FAERS Safety Report 14305146 (Version 1)
Quarter: 2017Q4

REPORT INFORMATION
  Report Type: Spontaneous
  Country: JP (occurrence: JP)
  Receive Date: 20171219
  Receipt Date: 20171219
  Transmission Date: 20180321
  Serious: Yes (Life-Threatening, Other)
  Sender: FDA-Public Use
  Company Number: JP-OTSUKA-006181

PATIENT
  Age: 59 Year
  Sex: Female
  Weight: 39 kg

DRUGS (11)
  1. ABILIFY [Suspect]
     Active Substance: ARIPIPRAZOLE
     Indication: SCHIZOPHRENIA
     Dosage: UNK MG, UNKNOWN
     Route: 048
     Dates: end: 200812
  2. PREDNISOLONE. [Concomitant]
     Active Substance: PREDNISOLONE
     Dosage: FORM = TAB.
     Dates: start: 20090107
  3. VEGETAMIN-B [Suspect]
     Active Substance: CHLORPROMAZINE HYDROCHLORIDE\PHENOBARBITAL\PROMETHAZINE
     Indication: INSOMNIA
     Dosage: FORM-TABLET.  UNK DOSE:UNK-DEC08  1DF: 22DEC08-06JAN09 (16DAYS)
     Route: 048
  4. PREDONINE [Concomitant]
     Active Substance: PREDNISOLONE
     Indication: MICROSCOPIC POLYANGIITIS
     Dosage: 20 MG, TID
     Route: 048
     Dates: start: 20090107
  5. BIOLACTIS [Concomitant]
     Active Substance: LACTOBACILLUS CASEI
     Indication: CONSTIPATION
     Dosage: 500 MG, TID
     Route: 048
     Dates: start: 20081223, end: 20090106
  6. ABILIFY [Suspect]
     Active Substance: ARIPIPRAZOLE
     Dosage: 12 MG, QD
     Route: 048
     Dates: start: 20081222, end: 20090106
  7. VEGETAMIN B [Suspect]
     Active Substance: CHLORPROMAZINE HYDROCHLORIDE\PHENOBARBITAL\PROMETHAZINE
     Indication: INSOMNIA
     Dosage: UNK, UNKNOWN
     Route: 048
     Dates: end: 200812
  8. HOKUNALIN [Concomitant]
     Active Substance: TULOBUTEROL
     Indication: ASTHMA
     Dosage: 2 MG, QD
     Route: 061
     Dates: start: 20081224, end: 20090106
  9. VEGETAMIN B [Suspect]
     Active Substance: CHLORPROMAZINE HYDROCHLORIDE\PHENOBARBITAL\PROMETHAZINE
     Dosage: 1 DF, QD
     Route: 048
     Dates: start: 20081222, end: 20090106
  10. LASIX [Suspect]
     Active Substance: FUROSEMIDE
     Indication: CARDIAC FAILURE
     Dosage: 40 MG, TID
     Route: 048
     Dates: start: 20090102, end: 20090106
  11. FUROSEMIDE. [Suspect]
     Active Substance: FUROSEMIDE
     Indication: CARDIAC FAILURE
     Dosage: LASIX SCH. FORM-TAB,120MG/DAY  DISCONTINUED ON 7JAN09.
     Route: 048

REACTIONS (2)
  - Vasculitis [Unknown]
  - Agranulocytosis [Recovered/Resolved]

NARRATIVE: CASE EVENT DATE: 20081219
